FAERS Safety Report 7759297-2 (Version None)
Quarter: 2011Q3

REPORT INFORMATION
  Report Type: 
  Country: None (occurrence: None)
  Receive Date: 20110919
  Receipt Date: 20110908
  Transmission Date: 20111222
  Serious: Yes (Life-Threatening, Other)
  Sender: FDA-Public Use
  Company Number: JP-CELGENEUS-087-CCAZA-11081299

PATIENT
  Sex: Female

DRUGS (16)
  1. AZACITIDINE [Suspect]
     Dosage: 37.5 MILLIGRAM/SQ. METER
     Route: 041
     Dates: start: 20110719, end: 20110722
  2. LANSOPRAZOLE [Concomitant]
     Route: 065
     Dates: start: 20110516
  3. ALLOPURINOL [Concomitant]
     Route: 065
     Dates: start: 20110729, end: 20110822
  4. AZACITIDINE [Suspect]
     Indication: MYELODYSPLASTIC SYNDROME
     Dosage: 75 MILLIGRAM/SQ. METER
     Route: 041
     Dates: start: 20110323, end: 20110527
  5. AZACITIDINE [Suspect]
     Dosage: 75 MILLIGRAM/SQ. METER
     Route: 041
     Dates: start: 20110530, end: 20110531
  6. CRESTOR [Concomitant]
     Route: 065
  7. SELBEX [Concomitant]
     Route: 065
  8. DOGMATYL [Concomitant]
     Route: 065
  9. LEVOFLOXACIN [Concomitant]
     Route: 065
     Dates: start: 20110516, end: 20110614
  10. VANCOMYCIN [Concomitant]
     Route: 065
     Dates: start: 20110728, end: 20110815
  11. DILTIAZEM HCL [Concomitant]
     Route: 065
  12. DIFLUCAN [Concomitant]
     Route: 065
     Dates: start: 20110516, end: 20110728
  13. ALLOPURINOL [Concomitant]
     Route: 065
     Dates: start: 20110523, end: 20110630
  14. AZACITIDINE [Suspect]
     Dosage: 37.5 MILLIGRAM/SQ. METER
     Route: 041
     Dates: start: 20110725, end: 20110727
  15. ISOSORBIDE DINITRATE [Concomitant]
     Route: 065
  16. MEROPENEM [Concomitant]
     Route: 065
     Dates: start: 20110727, end: 20110730

REACTIONS (4)
  - WHITE BLOOD CELL COUNT DECREASED [None]
  - PNEUMONIA [None]
  - PLATELET COUNT DECREASED [None]
  - NEUTROPHIL COUNT DECREASED [None]
